FAERS Safety Report 11344145 (Version 1)
Quarter: 2015Q3

REPORT INFORMATION
  Report Type: Spontaneous
  Country: US (occurrence: US)
  Receive Date: 20150806
  Receipt Date: 20150806
  Transmission Date: 20151125
  Serious: No
  Sender: FDA-Public Use
  Company Number: US-EISAI MEDICAL RESEARCH-EC-2015-008991

PATIENT

DRUGS (1)
  1. BELVIQ [Suspect]
     Active Substance: LORCASERIN HYDROCHLORIDE
     Indication: PRODUCT USED FOR UNKNOWN INDICATION
     Route: 048
     Dates: start: 20150210, end: 20150210

REACTIONS (4)
  - Feeling abnormal [Unknown]
  - Headache [Unknown]
  - Euphoric mood [Unknown]
  - Nausea [Unknown]

NARRATIVE: CASE EVENT DATE: 20150210
